FAERS Safety Report 24182470 (Version 1)
Quarter: 2024Q3

REPORT INFORMATION
  Report Type: Spontaneous
  Country: IL (occurrence: IL)
  Receive Date: 20240807
  Receipt Date: 20240807
  Transmission Date: 20241017
  Serious: Yes (Death, Other)
  Sender: SANDOZ
  Company Number: IL-SANDOZ-SDZ2024IL021245

PATIENT

DRUGS (3)
  1. BISANTRENE [Suspect]
     Active Substance: BISANTRENE
     Indication: Acute myeloid leukaemia refractory
     Dosage: 250 MG/M2 (2HOUR)
     Route: 042
  2. CLOFARABINE [Suspect]
     Active Substance: CLOFARABINE
     Indication: Acute myeloid leukaemia refractory
     Dosage: 30 MG/M2 (1 HOUR)
     Route: 042
  3. FLUDARABINE [Suspect]
     Active Substance: FLUDARABINE PHOSPHATE
     Indication: Acute myeloid leukaemia refractory
     Dosage: 10 MG/M2 (1 HOUR)
     Route: 042

REACTIONS (9)
  - Cerebral venous sinus thrombosis [Fatal]
  - Sepsis [Fatal]
  - Hepatotoxicity [Recovered/Resolved]
  - Nephropathy toxic [Unknown]
  - Febrile neutropenia [Unknown]
  - Bacteraemia [Unknown]
  - Pneumonia [Unknown]
  - Fungal infection [Unknown]
  - Fluid retention [Unknown]
